FAERS Safety Report 18580366 (Version 2)
Quarter: 2020Q4

REPORT INFORMATION
  Report Type: Spontaneous
  Country: BR (occurrence: BR)
  Receive Date: 20201204
  Receipt Date: 20201205
  Transmission Date: 20210114
  Serious: Yes (Life-Threatening)
  Sender: FDA-Public Use
  Company Number: NVSC2020BR322245

PATIENT
  Sex: Female

DRUGS (1)
  1. ESTRADOT [Suspect]
     Active Substance: ESTRADIOL
     Indication: PRODUCT USED FOR UNKNOWN INDICATION
     Dosage: 50 UG (8 SIST)
     Route: 065

REACTIONS (12)
  - Feeling hot [Unknown]
  - Nausea [Unknown]
  - Anxiety [Unknown]
  - Dizziness [Unknown]
  - Oestradiol abnormal [Unknown]
  - Blood pressure decreased [Unknown]
  - Vomiting [Unknown]
  - Treatment failure [Unknown]
  - Product availability issue [Unknown]
  - Drug dependence [Unknown]
  - Quality of life decreased [Unknown]
  - Malaise [Unknown]
